FAERS Safety Report 14986375 (Version 3)
Quarter: 2018Q4

REPORT INFORMATION
  Report Type: Report from Study
  Country: NO (occurrence: NO)
  Receive Date: 20180607
  Receipt Date: 20181108
  Transmission Date: 20190204
  Serious: Yes (Life-Threatening)
  Sender: FDA-Public Use
  Company Number: NO-BIOGEN-2018BI00589675

PATIENT
  Age: 44 Year
  Sex: Female

DRUGS (1)
  1. TYSABRI [Suspect]
     Active Substance: NATALIZUMAB
     Indication: PRODUCT USED FOR UNKNOWN INDICATION
     Route: 042
     Dates: start: 20090908, end: 20171130

REACTIONS (2)
  - Herpes ophthalmic [Recovered/Resolved]
  - Vulvovaginal human papilloma virus infection [Not Recovered/Not Resolved]

NARRATIVE: CASE EVENT DATE: 201510
